FAERS Safety Report 12476584 (Version 2)
Quarter: 2016Q4

REPORT INFORMATION
  Report Type: Spontaneous
  Country: JP (occurrence: JP)
  Receive Date: 20160617
  Receipt Date: 20161229
  Transmission Date: 20170207
  Serious: Yes (Other)
  Sender: FDA-Public Use
  Company Number: JP-009507513-1605JPN010517

PATIENT
  Age: 86 Year
  Sex: Female

DRUGS (2)
  1. FLUMARIN [Suspect]
     Active Substance: FLOMOXEF SODIUM
     Indication: ANTIPYRESIS
     Dosage: UNK
     Route: 041
     Dates: start: 2007
  2. TIENAM FOR INTRAVENOUS DRIP INFUSION 0.5G [Suspect]
     Active Substance: CILASTATIN SODIUM\IMIPENEM
     Indication: ANTIPYRESIS
     Dosage: UNK
     Route: 041
     Dates: start: 2007

REACTIONS (2)
  - Shock [Recovered/Resolved]
  - Feeling cold [Recovered/Resolved]

NARRATIVE: CASE EVENT DATE: 2007
